FAERS Safety Report 4331775-8 (Version None)
Quarter: 2004Q2

REPORT INFORMATION
  Report Type: 
  Country: None (occurrence: None)
  Receive Date: 20040405
  Receipt Date: 20030715
  Transmission Date: 20050107
  Serious: No
  Sender: FDA-Public Use
  Company Number: US-GLAXOSMITHKLINE-A0417630A

PATIENT
  Age: 67 Year
  Sex: Female

DRUGS (7)
  1. FLOVENT [Suspect]
     Dosage: 88MCG TWICE PER DAY
     Route: 055
     Dates: start: 20000101, end: 20030710
  2. COMBIVENT [Suspect]
     Route: 055
  3. ALBUTEROL [Concomitant]
     Route: 065
  4. NEBULIZER [Concomitant]
     Route: 055
  5. OXYGEN [Concomitant]
     Route: 065
  6. MULTIVITAMIN [Concomitant]
     Route: 065
  7. HERBS [Concomitant]
     Route: 065

REACTIONS (4)
  - ASTHENIA [None]
  - CHEST DISCOMFORT [None]
  - PYREXIA [None]
  - WEIGHT INCREASED [None]
